FAERS Safety Report 17631477 (Version 1)
Quarter: 2020Q2

REPORT INFORMATION
  Report Type: Spontaneous
  Country: US (occurrence: US)
  Receive Date: 20200406
  Receipt Date: 20200406
  Transmission Date: 20200713
  Serious: No
  Sender: FDA-Public Use
  Company Number: US-VERTEX PHARMACEUTICALS-2020-006531

PATIENT
  Age: 28 Year
  Sex: Female

DRUGS (2)
  1. XIFAXAN [Concomitant]
     Active Substance: RIFAXIMIN
     Dosage: INCREASED XIFAXAN
  2. TRIKAFTA [Suspect]
     Active Substance: ELEXACAFTOR\IVACAFTOR\TEZACAFTOR
     Indication: CYSTIC FIBROSIS
     Dosage: 2 DOSAGE FORM (2 ORANGE TABLETS IN MORNING), QD
     Route: 048
     Dates: start: 20191206

REACTIONS (2)
  - Dizziness [Recovering/Resolving]
  - Lethargy [Recovering/Resolving]

NARRATIVE: CASE EVENT DATE: 20191213
